FAERS Safety Report 9196309 (Version 1)
Quarter: 2013Q1

REPORT INFORMATION
  Report Type: Report from Study
  Country: DE (occurrence: DE)
  Receive Date: 20130328
  Receipt Date: 20130328
  Transmission Date: 20140127
  Serious: Yes (Death, Other)
  Sender: FDA-Public Use
  Company Number: DE-ASTELLAS-2013US003339

PATIENT
  Sex: Male
  Weight: 102 kg

DRUGS (6)
  1. ERLOTINIB TABLET [Suspect]
     Indication: NON-SMALL CELL LUNG CANCER
     Dosage: 150 MG, UID/QD
     Route: 048
     Dates: start: 200509, end: 200510
  2. ERLOTINIB TABLET [Suspect]
     Dosage: 75 MG, UID/QD
     Route: 048
     Dates: start: 200510, end: 200709
  3. ERLOTINIB TABLET [Suspect]
     Dosage: 112.5 MG, UID/QD
     Route: 048
     Dates: start: 200709, end: 200710
  4. ERLOTINIB TABLET [Suspect]
     Dosage: 150 MG, UID/QD
     Route: 054
     Dates: start: 200710, end: 200802
  5. ERLOTINIB TABLET [Suspect]
     Dosage: 200 MG, UID/QD
     Route: 048
     Dates: start: 200802
  6. ERLOTINIB TABLET [Suspect]
     Dosage: 175 MG, UID/QD
     Route: 048
     Dates: start: 2008, end: 200806

REACTIONS (10)
  - Death [Fatal]
  - Malignant neoplasm progression [Unknown]
  - Memory impairment [Not Recovered/Not Resolved]
  - Skin fissures [Unknown]
  - Paronychia [Unknown]
  - Transaminases increased [Unknown]
  - Rash [Unknown]
  - Diarrhoea [Unknown]
  - Dry skin [Unknown]
  - Conjunctivitis [Unknown]
